FAERS Safety Report 8707578 (Version 2)
Quarter: 2013Q4

REPORT INFORMATION
  Report Type: Spontaneous
  Country: US (occurrence: US)
  Receive Date: 20120805
  Receipt Date: 20131031
  Transmission Date: 20140711
  Serious: No
  Sender: FDA-Public Use
  Company Number: US-009507513-2012SP035592

PATIENT
  Age: 9 Year
  Sex: Female
  Weight: 27.66 kg

DRUGS (2)
  1. CLARITIN REDITABS [Suspect]
     Indication: HYPERSENSITIVITY
     Dosage: 20 MG, ONCE
     Route: 048
     Dates: start: 2012
  2. CLARITIN REDITABS [Suspect]
     Dosage: 10 MG, QD
     Route: 048
     Dates: start: 201204, end: 201206

REACTIONS (2)
  - Fatigue [Unknown]
  - Accidental overdose [Unknown]
